FAERS Safety Report 4521955-0 (Version None)
Quarter: 2004Q4

REPORT INFORMATION
  Report Type: 
  Country: None (occurrence: None)
  Receive Date: 20041207
  Receipt Date: 20041207
  Transmission Date: 20050328
  Serious: Yes (Other)
  Sender: FDA-Public Use
  Company Number: None

PATIENT
  Age: 23 Year
  Sex: Female
  Weight: 136.0791 kg

DRUGS (1)
  1. SPRINTEC [Suspect]
     Indication: CONTRACEPTION
     Dosage: 1 TABLER   ONCE DAILY   ORAL
     Route: 048
     Dates: start: 20040701, end: 20040930

REACTIONS (5)
  - AMENORRHOEA [None]
  - HYPOMENORRHOEA [None]
  - MENORRHAGIA [None]
  - OLIGOMENORRHOEA [None]
  - PHARMACEUTICAL PRODUCT COMPLAINT [None]
